FAERS Safety Report 15894411 (Version 1)
Quarter: 2019Q1

REPORT INFORMATION
  Report Type: Spontaneous
  Country: DE (occurrence: DE)
  Receive Date: 20190131
  Receipt Date: 20190131
  Transmission Date: 20190417
  Serious: Yes (Life-Threatening, Other)
  Sender: FDA-Public Use
  Company Number: DE-ABBVIE-19K-062-2641936-00

PATIENT
  Age: 45 Year

DRUGS (1)
  1. HUMIRA [Suspect]
     Active Substance: ADALIMUMAB
     Indication: CROHN^S DISEASE
     Route: 058

REACTIONS (9)
  - Congestive cardiomyopathy [Unknown]
  - Cerebellar infarction [Unknown]
  - Cardiac failure [Unknown]
  - Cerebellar embolism [Unknown]
  - Aortic valve incompetence [Recovering/Resolving]
  - Asthenia [Unknown]
  - Atrial fibrillation [Recovering/Resolving]
  - Crohn^s disease [Unknown]
  - Pallor [Unknown]

NARRATIVE: CASE EVENT DATE: 20160312
